FAERS Safety Report 6021112-5 (Version None)
Quarter: 2008Q4

REPORT INFORMATION
  Report Type: 
  Country: None (occurrence: None)
  Receive Date: 20081229
  Receipt Date: 20081215
  Transmission Date: 20090506
  Serious: Yes (Other)
  Sender: FDA-Public Use
  Company Number: US-PFIZER INC-2008098538

PATIENT
  Sex: Female

DRUGS (1)
  1. GEODON [Suspect]
     Indication: BIPOLAR DISORDER

REACTIONS (6)
  - BARIATRIC GASTRIC BALLOON INSERTION [None]
  - BIPOLAR DISORDER [None]
  - GASTRIC DISORDER [None]
  - GASTRIC OPERATION [None]
  - INTENTIONAL DRUG MISUSE [None]
  - MALABSORPTION [None]
